FAERS Safety Report 21280675 (Version 1)
Quarter: 2022Q3

REPORT INFORMATION
  Report Type: Spontaneous
  Country: IE (occurrence: IE)
  Receive Date: 20220901
  Receipt Date: 20220901
  Transmission Date: 20221027
  Serious: Yes (Life-Threatening, Other)
  Sender: FDA-Public Use
  Company Number: None

PATIENT
  Sex: Male

DRUGS (1)
  1. TEGRETOL [Suspect]
     Active Substance: CARBAMAZEPINE
     Indication: Product used for unknown indication
     Dosage: 100 MG (PRESCRIBED TEGRETOL MANY YEARS BEFORE, BEARING IN MIND I DON?T HAVE EPILEPSY, BUT THAT TABLE
     Route: 065

REACTIONS (2)
  - Pulmonary embolism [Recovered/Resolved]
  - Product prescribing issue [Not Recovered/Not Resolved]
